FAERS Safety Report 14343853 (Version 1)
Quarter: 2017Q4

REPORT INFORMATION
  Report Type: Spontaneous
  Country: US (occurrence: US)
  Receive Date: 20171229
  Receipt Date: 20171229
  Transmission Date: 20180321
  Serious: No
  Sender: FDA-Public Use
  Company Number: None

PATIENT
  Age: 63 Year
  Sex: Female

DRUGS (1)
  1. HARVONI [Suspect]
     Active Substance: LEDIPASVIR\SOFOSBUVIR
     Indication: HEPATITIS C
     Dosage: 1 TABLET DAILY BY MOUTH
     Route: 048
     Dates: start: 20171212

REACTIONS (5)
  - Wrong technique in product usage process [None]
  - Chest pain [None]
  - Anxiety [None]
  - Dyspepsia [None]
  - Muscular weakness [None]

NARRATIVE: CASE EVENT DATE: 20171212
